FAERS Safety Report 24980103 (Version 1)
Quarter: 2025Q1

REPORT INFORMATION
  Report Type: Other
  Country: IT (occurrence: IT)
  Receive Date: 20250218
  Receipt Date: 20250218
  Transmission Date: 20250409
  Serious: Yes (Hospitalization)
  Sender: BIOCON
  Company Number: None

PATIENT

DRUGS (3)
  1. OGIVRI [Suspect]
     Active Substance: TRASTUZUMAB-DKST
     Indication: Breast cancer
     Route: 042
     Dates: start: 20250206, end: 20250206
  2. OGIVRI [Suspect]
     Active Substance: TRASTUZUMAB-DKST
     Route: 042
     Dates: start: 20250206, end: 20250206
  3. PERJETA [Suspect]
     Active Substance: PERTUZUMAB
     Indication: Breast cancer
     Route: 042
     Dates: start: 20250206, end: 20250206

REACTIONS (4)
  - Pallor [Unknown]
  - Malaise [Unknown]
  - Bone pain [Unknown]
  - Chills [Unknown]

NARRATIVE: CASE EVENT DATE: 20250206
